FAERS Safety Report 13679803 (Version 1)
Quarter: 2017Q2

REPORT INFORMATION
  Report Type: Spontaneous
  Country: IT (occurrence: IT)
  Receive Date: 20170622
  Receipt Date: 20170622
  Transmission Date: 20170830
  Serious: Yes (Hospitalization, Other)
  Sender: FDA-Public Use
  Company Number: IT-MYLANLABS-2017M1036443

PATIENT

DRUGS (6)
  1. MESALAZINE MYLAN [Suspect]
     Active Substance: MESALAMINE
     Indication: PROCTITIS ULCERATIVE
     Dosage: 1200 MG DAILY
     Route: 048
     Dates: start: 20170522, end: 20170526
  2. DELTACORTENE [Concomitant]
     Active Substance: PREDNISONE
     Indication: HENOCH-SCHONLEIN PURPURA
     Dosage: 40 MG
     Route: 048
  3. REUFLOR [Concomitant]
     Indication: HENOCH-SCHONLEIN PURPURA
     Dosage: 10 GTT, QD
     Route: 048
     Dates: start: 20170504
  4. MESALAZINA MYLAN GENERICS 400 MG COMPRESSE GASTRORESISTENTI [Suspect]
     Active Substance: MESALAMINE
     Indication: PROCTITIS ULCERATIVE
     Dosage: 800 MG DAILY
     Route: 048
     Dates: start: 20170511, end: 20170521
  5. ANTRA [Concomitant]
     Active Substance: OMEPRAZOLE
     Indication: PROPHYLAXIS AGAINST GASTROINTESTINAL ULCER
     Dosage: 40 MG
     Route: 048
  6. DIBASE [Concomitant]
     Active Substance: CHOLECALCIFEROL
     Indication: VITAMIN D DEFICIENCY
     Dosage: 8 GTT
     Route: 048

REACTIONS (1)
  - Erythema multiforme [Recovering/Resolving]

NARRATIVE: CASE EVENT DATE: 20170526
